FAERS Safety Report 7628688-2 (Version None)
Quarter: 2011Q3

REPORT INFORMATION
  Report Type: 
  Country: None (occurrence: None)
  Receive Date: 20110721
  Receipt Date: 20110721
  Transmission Date: 20111222
  Serious: Yes (Hospitalization)
  Sender: FDA-Public Use
  Company Number: None

PATIENT
  Age: 83 Year
  Sex: Female

DRUGS (6)
  1. LOSARTAN POTASSIUM [Concomitant]
  2. LOVASTATIN [Concomitant]
  3. TRAMADOL HCL [Suspect]
     Indication: PAIN
     Dosage: TAKE 1 TABLET EVERY 6 HOURS AS NEEDED FOR PAIN
  4. LEXAPRO [Concomitant]
  5. OMEPRAZOLE [Concomitant]
  6. LEVOTHYROXINE SODIUM [Concomitant]

REACTIONS (1)
  - ABNORMAL DREAMS [None]
